FAERS Safety Report 18164352 (Version 2)
Quarter: 2020Q3

REPORT INFORMATION
  Report Type: Spontaneous
  Country: LB (occurrence: LB)
  Receive Date: 20200818
  Receipt Date: 20200821
  Transmission Date: 20201103
  Serious: Yes (Other)
  Sender: FDA-Public Use
  Company Number: LB-PFIZER INC-2020317492

PATIENT
  Sex: Male

DRUGS (3)
  1. INLYTA [Suspect]
     Active Substance: AXITINIB
     Dosage: 1 MG, 4 PILLS/DAY
     Route: 048
     Dates: start: 202008
  2. INLYTA [Suspect]
     Active Substance: AXITINIB
     Dosage: 5 MG, 2X/DAY
     Route: 048
     Dates: start: 202006, end: 202006
  3. INLYTA [Suspect]
     Active Substance: AXITINIB
     Dosage: 1 MG TABLETS: 2 TABLETS IN THE MORNING AND 3 TABLETS IN THE EVENING
     Route: 048
     Dates: start: 202008

REACTIONS (2)
  - Fatigue [Unknown]
  - Renal failure [Unknown]
